FAERS Safety Report 6357291-X (Version None)
Quarter: 2009Q3

REPORT INFORMATION
  Report Type: 
  Country: None (occurrence: None)
  Receive Date: 20090916
  Receipt Date: 20090904
  Transmission Date: 20100115
  Serious: Yes (Other)
  Sender: FDA-Public Use
  Company Number: PHEH2008US11471

PATIENT
  Sex: Female
  Weight: 53.741 kg

DRUGS (10)
  1. RECLAST [Suspect]
     Dosage: UNK, UNK
     Dates: start: 20081104, end: 20081201
  2. NEXIUM [Concomitant]
     Dosage: 40 MG, QD
  3. BENTYL [Concomitant]
  4. VITAMIN D [Concomitant]
     Dosage: 1000 IU, BID
  5. XANAX [Concomitant]
     Dosage: 1 MG, QD
  6. PROZAC [Concomitant]
     Dosage: 20 MG, QD
  7. VITAMIN E [Concomitant]
     Dosage: UNK, DAILY
  8. ASCORBIC ACID [Concomitant]
     Dosage: UNK, DAILY
  9. TUMS [Concomitant]
     Dosage: TWO DAILY
  10. CRESTOR [Concomitant]
     Dosage: 10 MG, QD

REACTIONS (10)
  - ATRIAL FIBRILLATION [None]
  - DECREASED APPETITE [None]
  - GLOSSODYNIA [None]
  - MALAISE [None]
  - MALNUTRITION [None]
  - METABOLIC DISORDER [None]
  - NO THERAPEUTIC RESPONSE [None]
  - PAIN IN EXTREMITY [None]
  - THERAPEUTIC RESPONSE UNEXPECTED [None]
  - WEIGHT DECREASED [None]
